FAERS Safety Report 25480166 (Version 1)
Quarter: 2025Q2

REPORT INFORMATION
  Report Type: Spontaneous
  Country: US (occurrence: US)
  Receive Date: 20250625
  Receipt Date: 20250625
  Transmission Date: 20250716
  Serious: No
  Sender: SANOFI AVENTIS
  Company Number: US-SA-2025SA178684

PATIENT
  Age: 54 Year
  Sex: Female

DRUGS (1)
  1. DUPIXENT [Suspect]
     Active Substance: DUPILUMAB
     Indication: Oesophageal obstruction
     Dosage: 300 MG, QW
     Route: 058

REACTIONS (5)
  - Dysphagia [Recovered/Resolved]
  - Eosinophilic oesophagitis [Recovering/Resolving]
  - Keratomileusis [Unknown]
  - Dry eye [Unknown]
  - Product use in unapproved indication [Unknown]
